FAERS Safety Report 8555770-8 (Version None)
Quarter: 2012Q3

REPORT INFORMATION
  Report Type: 
  Country: None (occurrence: None)
  Receive Date: 20120801
  Receipt Date: 20120723
  Transmission Date: 20120928
  Serious: Yes (Hospitalization, Other)
  Sender: FDA-Public Use
  Company Number: US-BIOGENIDEC-2012BI027560

PATIENT
  Age: 51 Year
  Sex: Male

DRUGS (21)
  1. CYMBALTA [Concomitant]
     Route: 048
     Dates: start: 20120111
  2. SELENIUM [Concomitant]
     Route: 048
     Dates: start: 20110927
  3. ASPIRIN [Concomitant]
     Route: 048
     Dates: start: 20070803
  4. CHOLINE BITARTRATE [Concomitant]
     Dates: start: 20070803
  5. LYRICA [Concomitant]
     Route: 048
     Dates: start: 20111128
  6. LOVAZA [Concomitant]
     Dates: start: 20110803
  7. AMPYRA [Concomitant]
     Route: 048
     Dates: start: 20120126
  8. SYNTHROID [Concomitant]
     Route: 048
     Dates: start: 20070803
  9. TYSABRI [Suspect]
     Indication: MULTIPLE SCLEROSIS
     Route: 042
     Dates: start: 20071207
  10. RESVERATROL [Concomitant]
     Route: 048
     Dates: start: 20111122
  11. VITAMIN B-12 [Concomitant]
     Dates: start: 20110927
  12. VITAMIN D [Concomitant]
     Dates: start: 20110927
  13. FINASTERIDE [Concomitant]
     Route: 048
     Dates: start: 20111128
  14. LISINOPRIL [Concomitant]
     Route: 048
     Dates: start: 20070803
  15. POTASSIUM MAGNESIUM ASPARTAT [Concomitant]
     Dates: start: 20070803
  16. ULTRAM [Concomitant]
     Route: 048
     Dates: start: 20110927
  17. CALCIUM [Concomitant]
     Dates: start: 20110927
  18. CLORAZEPATE DIPOTASSIUM [Concomitant]
     Route: 048
     Dates: start: 20111011
  19. CO Q-10 [Concomitant]
     Dates: start: 20111128
  20. IBUPROFEN [Concomitant]
     Route: 048
     Dates: start: 20070803
  21. PENNSAID TOPICAL SOLUTION 1.5%W/W [Concomitant]
     Indication: PAIN
     Route: 061
     Dates: start: 20120320

REACTIONS (2)
  - RASH GENERALISED [None]
  - HEPATITIS [None]
